FAERS Safety Report 21970495 (Version 4)
Quarter: 2023Q1

REPORT INFORMATION
  Report Type: Spontaneous
  Country: US (occurrence: US)
  Receive Date: 20230209
  Receipt Date: 20230322
  Transmission Date: 20230417
  Serious: Yes (Death, Hospitalization, Other)
  Sender: FDA-Public Use
  Company Number: US-BAXTER-2023BAX011791

PATIENT
  Age: 66 Year
  Sex: Female
  Weight: 60.2 kg

DRUGS (25)
  1. CYCLOPHOSPHAMIDE [Suspect]
     Active Substance: CYCLOPHOSPHAMIDE
     Indication: Ovarian cancer stage III
     Dosage: 3800 MG, OD
     Route: 042
     Dates: start: 20220927, end: 20220928
  2. CYCLOPHOSPHAMIDE [Suspect]
     Active Substance: CYCLOPHOSPHAMIDE
     Indication: Ovarian cancer metastatic
  3. CYCLOPHOSPHAMIDE [Suspect]
     Active Substance: CYCLOPHOSPHAMIDE
     Indication: Ovarian cancer recurrent
  4. CYCLOPHOSPHAMIDE [Suspect]
     Active Substance: CYCLOPHOSPHAMIDE
     Indication: Adenocarcinoma
  5. FLUDARABINE [Suspect]
     Active Substance: FLUDARABINE PHOSPHATE
     Indication: Ovarian cancer stage III
     Dosage: 40 MG, OD
     Route: 042
     Dates: start: 20220927, end: 20220929
  6. FLUDARABINE [Suspect]
     Active Substance: FLUDARABINE PHOSPHATE
     Indication: Ovarian cancer metastatic
  7. FLUDARABINE [Suspect]
     Active Substance: FLUDARABINE PHOSPHATE
     Indication: Ovarian cancer recurrent
  8. FLUDARABINE [Suspect]
     Active Substance: FLUDARABINE PHOSPHATE
     Indication: Adenocarcinoma
  9. PACLITAXEL [Suspect]
     Active Substance: PACLITAXEL
     Indication: Ovarian cancer stage III
     Dosage: FROM NOV-2020 TO JAN-2021
     Route: 065
  10. PACLITAXEL [Suspect]
     Active Substance: PACLITAXEL
     Indication: Ovarian cancer metastatic
     Dosage: IN FEB-2021, ADJUVANT
     Route: 065
  11. PACLITAXEL [Suspect]
     Active Substance: PACLITAXEL
     Indication: Ovarian cancer recurrent
  12. PACLITAXEL [Suspect]
     Active Substance: PACLITAXEL
     Indication: Adenocarcinoma
  13. CARBOPLATIN [Suspect]
     Active Substance: CARBOPLATIN
     Indication: Ovarian cancer stage III
     Dosage: FROM NOV-2020 TO JAN-2021
     Route: 065
  14. CARBOPLATIN [Suspect]
     Active Substance: CARBOPLATIN
     Indication: Ovarian cancer metastatic
     Dosage: IN FEB-2021, ADJUVANT
     Route: 065
  15. CARBOPLATIN [Suspect]
     Active Substance: CARBOPLATIN
     Indication: Ovarian cancer recurrent
     Dosage: UNK
     Route: 065
  16. CARBOPLATIN [Suspect]
     Active Substance: CARBOPLATIN
     Indication: Adenocarcinoma
  17. AVASTIN [Suspect]
     Active Substance: BEVACIZUMAB
     Indication: Ovarian cancer stage III
     Route: 065
  18. AVASTIN [Suspect]
     Active Substance: BEVACIZUMAB
     Indication: Ovarian cancer metastatic
  19. AVASTIN [Suspect]
     Active Substance: BEVACIZUMAB
     Indication: Ovarian cancer recurrent
  20. AVASTIN [Suspect]
     Active Substance: BEVACIZUMAB
     Indication: Adenocarcinoma
  21. GEMCITABINE [Suspect]
     Active Substance: GEMCITABINE
     Indication: Ovarian cancer stage III
     Route: 065
  22. GEMCITABINE [Suspect]
     Active Substance: GEMCITABINE
     Indication: Ovarian cancer metastatic
  23. GEMCITABINE [Suspect]
     Active Substance: GEMCITABINE
     Indication: Ovarian cancer recurrent
  24. GEMCITABINE [Suspect]
     Active Substance: GEMCITABINE
     Indication: Adenocarcinoma
  25. CYCLOBENZAPRINE [Concomitant]
     Active Substance: CYCLOBENZAPRINE
     Dosage: IN 2021, 1 TAB(S) 3 TIMES A DAY AS NEEDED MUSCLE SPASMS
     Route: 048

REACTIONS (35)
  - Atelectasis [Unknown]
  - Venous occlusion [Unknown]
  - Petechiae [Unknown]
  - Hypoalbuminaemia [Unknown]
  - Blood lactic acid increased [Unknown]
  - Fall [Unknown]
  - Arrhythmia [Fatal]
  - Ejection fraction decreased [Recovered/Resolved with Sequelae]
  - Ejection fraction decreased [Unknown]
  - Blood creatinine increased [Unknown]
  - Pulmonary hypertension [Unknown]
  - Hypoxia [Unknown]
  - Neurotoxicity [Unknown]
  - Acute kidney injury [Unknown]
  - Cardiomyopathy [Unknown]
  - Deep vein thrombosis [Unknown]
  - Thrombocytopenia [Unknown]
  - Respiratory distress [Unknown]
  - Respiratory rate increased [Unknown]
  - Dyspnoea [Unknown]
  - Oxygen saturation decreased [Unknown]
  - Ascites [Unknown]
  - Pleural effusion [Unknown]
  - Oedema peripheral [Unknown]
  - Thrombosis [Unknown]
  - Dizziness [Unknown]
  - Chest pain [Unknown]
  - Tachycardia [Unknown]
  - Platelet count decreased [Unknown]
  - Renal impairment [Unknown]
  - Localised oedema [Unknown]
  - Generalised oedema [Unknown]
  - Hypotension [Unknown]
  - Pancytopenia [Unknown]
  - Cardiac failure [Fatal]

NARRATIVE: CASE EVENT DATE: 20221219
